FAERS Safety Report 26043822 (Version 1)
Quarter: 2025Q4

REPORT INFORMATION
  Report Type: Spontaneous
  Country: US (occurrence: US)
  Receive Date: 20251114
  Receipt Date: 20251114
  Transmission Date: 20260118
  Serious: No
  Sender: ABBVIE
  Company Number: US-ABBVIE-6543444

PATIENT
  Age: 55 Year
  Sex: Male

DRUGS (2)
  1. CARBIDOPA\LEVODOPA [Suspect]
     Active Substance: CARBIDOPA\LEVODOPA
     Indication: Product used for unknown indication
     Route: 050
  2. CARBIDOPA\LEVODOPA [Suspect]
     Active Substance: CARBIDOPA\LEVODOPA
     Dosage: DOSE ESCALATION TO 450 MG/DAY
     Route: 050

REACTIONS (12)
  - Apathy [Unknown]
  - Hallucination [Unknown]
  - Pain in extremity [Unknown]
  - Dystonia [Unknown]
  - Gait inability [Unknown]
  - Fall [Unknown]
  - Fear of falling [Unknown]
  - Asthenia [Unknown]
  - Pyrexia [Unknown]
  - Depression [Unknown]
  - Insomnia [Unknown]
  - Balance disorder [Unknown]
